FAERS Safety Report 12654246 (Version 1)
Quarter: 2016Q3

REPORT INFORMATION
  Report Type: Spontaneous
  Country: US (occurrence: US)
  Receive Date: 20160816
  Receipt Date: 20160816
  Transmission Date: 20161109
  Serious: No
  Sender: FDA-Public Use
  Company Number: US-DRREDDYS-USA/USA/15/0049573

PATIENT
  Sex: Female
  Weight: 80.28 kg

DRUGS (1)
  1. LEVOFLOXACIN TABLETS 500 MG [Suspect]
     Active Substance: LEVOFLOXACIN
     Indication: URINARY TRACT INFECTION
     Route: 048
     Dates: start: 20150713, end: 20150720

REACTIONS (2)
  - Arthralgia [Not Recovered/Not Resolved]
  - Drug hypersensitivity [Unknown]
